FAERS Safety Report 4625304-9 (Version None)
Quarter: 2005Q1

REPORT INFORMATION
  Report Type: 
  Country: None (occurrence: None)
  Receive Date: 20050107
  Receipt Date: 20041007
  Transmission Date: 20050727
  Serious: No
  Sender: FDA-Public Use
  Company Number: 235099K04USA

PATIENT
  Age: 38 Year
  Sex: Male

DRUGS (3)
  1. REBIF [Suspect]
     Indication: MULTIPLE SCLEROSIS
     Dosage: 44 MCG, 3 IN 1 WEEKS
     Dates: start: 20040112
  2. DETROL [Concomitant]
  3. NOVANTRONE [Concomitant]

REACTIONS (2)
  - HYPERTONIA [None]
  - MUSCLE SPASTICITY [None]
